FAERS Safety Report 7281864-3 (Version None)
Quarter: 2011Q1

REPORT INFORMATION
  Report Type: 
  Country: None (occurrence: None)
  Receive Date: 20110208
  Receipt Date: 20110126
  Transmission Date: 20110831
  Serious: Yes (Life-Threatening, Hospitalization)
  Sender: FDA-Public Use
  Company Number: GB-MYLANLABS-2011S1001770

PATIENT
  Age: 82 Year
  Sex: Male
  Weight: 105 kg

DRUGS (11)
  1. BISOPROLOL [Concomitant]
     Indication: PRODUCT USED FOR UNKNOWN INDICATION
     Dates: start: 20101004, end: 20101227
  2. ALFUZOSIN [Concomitant]
     Indication: PRODUCT USED FOR UNKNOWN INDICATION
     Dates: start: 20101122, end: 20101222
  3. WARFARIN SODIUM [Suspect]
     Indication: PRODUCT USED FOR UNKNOWN INDICATION
     Dates: start: 20101129
  4. ZOLADEX [Concomitant]
     Indication: PRODUCT USED FOR UNKNOWN INDICATION
     Dates: start: 20101201, end: 20101202
  5. DIGITOXIN [Concomitant]
     Dates: start: 20110111
  6. ALFUZOSIN [Concomitant]
     Dates: start: 20101129, end: 20101229
  7. BISOPROLOL [Concomitant]
     Dates: start: 20110111
  8. BICALUTAMIDE [Concomitant]
     Indication: PRODUCT USED FOR UNKNOWN INDICATION
     Dates: start: 20110110
  9. BICALUTAMIDE [Concomitant]
     Dates: start: 20101122, end: 20101227
  10. DIGITOXIN [Concomitant]
     Indication: PRODUCT USED FOR UNKNOWN INDICATION
     Dates: start: 20101004, end: 20101227
  11. PARACETAMOL [Concomitant]
     Indication: PRODUCT USED FOR UNKNOWN INDICATION
     Dates: start: 20110111, end: 20110101

REACTIONS (2)
  - SUBDURAL HAEMATOMA [None]
  - FALL [None]
